FAERS Safety Report 14984350 (Version 2)
Quarter: 2018Q2

REPORT INFORMATION
  Report Type: Report from Study
  Country: PE (occurrence: PE)
  Receive Date: 20180607
  Receipt Date: 20180628
  Transmission Date: 20180711
  Serious: Yes (Other)
  Sender: FDA-Public Use
  Company Number: PE-JNJFOC-20180542698

PATIENT
  Age: 59 Year
  Sex: Female

DRUGS (1)
  1. SIMPONI [Suspect]
     Active Substance: GOLIMUMAB
     Indication: RHEUMATOID ARTHRITIS
     Route: 058
     Dates: start: 20180124

REACTIONS (3)
  - Arthralgia [Unknown]
  - Urticaria [Recovered/Resolved]
  - Gastroenteritis [Not Recovered/Not Resolved]

NARRATIVE: CASE EVENT DATE: 201804
